FAERS Safety Report 13258003 (Version 1)
Quarter: 2017Q1

REPORT INFORMATION
  Report Type: Spontaneous
  Country: US (occurrence: US)
  Receive Date: 20170221
  Receipt Date: 20170221
  Transmission Date: 20170428
  Serious: No
  Sender: FDA-Public Use
  Company Number: US-PERRIGO-16US001075

PATIENT
  Age: 28 Year
  Sex: Female
  Weight: 79.37 kg

DRUGS (4)
  1. KETOCONAZOLE. [Suspect]
     Active Substance: KETOCONAZOLE
     Indication: SKIN DISORDER
     Dosage: 1 APPLICATION, PRN
     Route: 061
     Dates: end: 20160119
  2. RANITIDINE. [Concomitant]
     Active Substance: RANITIDINE
     Indication: GASTROOESOPHAGEAL REFLUX DISEASE
     Dosage: UNK
     Route: 048
  3. KETOCONAZOLE. [Suspect]
     Active Substance: KETOCONAZOLE
     Dosage: 1 APPLICATION, PRN
     Route: 061
     Dates: start: 20160120
  4. CARBATROL [Concomitant]
     Active Substance: CARBAMAZEPINE
     Indication: SEIZURE
     Dosage: UNK
     Route: 065

REACTIONS (1)
  - Drug ineffective [Unknown]

NARRATIVE: CASE EVENT DATE: 201601
